FAERS Safety Report 6189272-3 (Version None)
Quarter: 2009Q2

REPORT INFORMATION
  Report Type: 
  Country: None (occurrence: None)
  Receive Date: 20090512
  Receipt Date: 20090303
  Transmission Date: 20091009
  Serious: Yes (Hospitalization, Other)
  Sender: FDA-Public Use
  Company Number: DSU-2009-00531

PATIENT
  Age: 65 Year
  Sex: Male
  Weight: 73.9363 kg

DRUGS (12)
  1. BENICAR HCT [Suspect]
     Indication: HYPERTENSION
     Dosage: 40/25 MG (QD), PER ORAL
     Route: 048
     Dates: end: 20070101
  2. BENICAR HCT [Suspect]
     Indication: HYPERTENSION
     Dosage: 40/25 MG (QD), PER ORAL
     Route: 048
     Dates: start: 20081001, end: 20080101
  3. ATENOLOL (ATENOLOL)    (25 MILLIGRAM) (ATENOLOL) [Suspect]
     Indication: ARRHYTHMIA
     Dosage: 25 MG (25 MG, QD)
     Dates: end: 20070101
  4. MERCAPTOPURINE (MERCAPTOPURINE) (50 MILLIGRAM) [Suspect]
     Indication: DRUG USE FOR UNKNOWN INDICATION
     Dosage: 100 MG (100 MG, QD)
     Dates: end: 20070101
  5. PREDNISONE TAB [Suspect]
     Indication: DRUG USE FOR UNKNOWN INDICATION
     Dates: end: 20080101
  6. VITAMIN D (ERGOCALCIFEROL) (125 MILLIGRAM) (ERGOCALCIFEROL) [Concomitant]
  7. SERTRALINE (SERTRALINE) (50 MILLIGRAM) (SERTRALINE) [Concomitant]
  8. TEMAZEPAM (TEMAZEPAM) (30 MILLIGRAM, TABLET) (TEMAZEPAM) [Concomitant]
  9. KLOR-CON (POTASSIUM CHLORIDE) (20 MILLIEQUIVALENTS) [Concomitant]
  10. CALCIUM (CALCIUM)     (600 MILLIGRAM) (CALCIUM) [Concomitant]
  11. ASPIRIN (ACETYLSALICYLIC ACID) (325 MILLIGRAM, TABLET) [Concomitant]
  12. CENTRUM (VITAMINS NOS, MINERALS NOS) [Concomitant]

REACTIONS (15)
  - ASTHENIA [None]
  - BLOOD CHLORIDE INCREASED [None]
  - BLOOD PRESSURE SYSTOLIC INCREASED [None]
  - COELIAC DISEASE [None]
  - CONTUSION [None]
  - DEHYDRATION [None]
  - DIARRHOEA [None]
  - HAEMOGLOBIN DECREASED [None]
  - HEART RATE DECREASED [None]
  - LETHARGY [None]
  - PLATELET COUNT DECREASED [None]
  - SKIN ATROPHY [None]
  - TRANSFERRIN SATURATION INCREASED [None]
  - WEIGHT DECREASED [None]
  - WHITE BLOOD CELL COUNT DECREASED [None]
